FAERS Safety Report 19358373 (Version 1)
Quarter: 2021Q2

REPORT INFORMATION
  Report Type: Spontaneous
  Country: US (occurrence: US)
  Receive Date: 20210602
  Receipt Date: 20210602
  Transmission Date: 20210717
  Serious: No
  Sender: FDA-Public Use
  Company Number: None

PATIENT
  Age: 63 Year
  Sex: Female

DRUGS (1)
  1. BENLYSTA [Suspect]
     Active Substance: BELIMUMAB
     Indication: SYSTEMIC LUPUS ERYTHEMATOSUS
     Route: 058
     Dates: start: 20210520, end: 20210602

REACTIONS (4)
  - Dyspnoea [None]
  - Pharyngeal swelling [None]
  - Dry throat [None]
  - Condition aggravated [None]

NARRATIVE: CASE EVENT DATE: 20210526
